FAERS Safety Report 9945978 (Version 2)
Quarter: 2014Q2

REPORT INFORMATION
  Report Type: Spontaneous
  Country: JP (occurrence: JP)
  Receive Date: 20140303
  Receipt Date: 20140418
  Transmission Date: 20141212
  Serious: Yes (Disabling)
  Sender: FDA-Public Use
  Company Number: JP-ABBVIE-14P-087-1208494-00

PATIENT
  Age: 84 Year
  Sex: Female
  Weight: 47 kg

DRUGS (16)
  1. LANSAP [Suspect]
     Indication: HELICOBACTER INFECTION
     Route: 048
     Dates: start: 20130903, end: 20130903
  2. LANSAP [Interacting]
     Indication: HELICOBACTER INFECTION
     Route: 048
     Dates: start: 20130904, end: 20130904
  3. LANSAP [Interacting]
     Route: 048
     Dates: start: 20130903, end: 20130903
  4. LANSAP [Interacting]
     Route: 048
     Dates: start: 20130904, end: 20130904
  5. LANSOPRAZOLE [Interacting]
     Indication: HELICOBACTER INFECTION
     Route: 048
     Dates: start: 20130903, end: 20130903
  6. LANSOPRAZOLE [Interacting]
     Route: 048
     Dates: start: 20130904, end: 20130904
  7. AMOXICILLIN [Interacting]
     Indication: HELICOBACTER INFECTION
     Route: 048
     Dates: start: 20130903, end: 20130903
  8. AMOXICILLIN [Interacting]
     Route: 048
     Dates: start: 20130904, end: 20130904
  9. GLIMEPIRIDE [Interacting]
     Indication: TYPE 2 DIABETES MELLITUS
     Route: 048
     Dates: end: 20130904
  10. BAYASPIRIN [Concomitant]
     Indication: PRODUCT USED FOR UNKNOWN INDICATION
     Dates: start: 20130830, end: 20130904
  11. AMLODIPINE [Concomitant]
     Indication: PRODUCT USED FOR UNKNOWN INDICATION
     Dates: end: 20130904
  12. SPIRONOLACTONE [Concomitant]
     Indication: PRODUCT USED FOR UNKNOWN INDICATION
     Dates: end: 20130904
  13. AMLODIN [Concomitant]
     Indication: PRODUCT USED FOR UNKNOWN INDICATION
     Dates: end: 20130904
  14. PREMINENT [Concomitant]
     Indication: PRODUCT USED FOR UNKNOWN INDICATION
     Dates: end: 20130904
  15. LANIRAPID [Concomitant]
     Indication: PRODUCT USED FOR UNKNOWN INDICATION
     Dates: end: 20130904
  16. ARTIST [Concomitant]
     Indication: PRODUCT USED FOR UNKNOWN INDICATION
     Dates: end: 20130904

REACTIONS (3)
  - Hypoglycaemic encephalopathy [Recovered/Resolved with Sequelae]
  - Hypoglycaemia [Recovered/Resolved with Sequelae]
  - Drug interaction [Recovered/Resolved with Sequelae]
